FAERS Safety Report 19587386 (Version 2)
Quarter: 2021Q3

REPORT INFORMATION
  Report Type: Report from Study
  Country: JP (occurrence: JP)
  Receive Date: 20210721
  Receipt Date: 20210827
  Transmission Date: 20211014
  Serious: Yes (Life-Threatening, Other)
  Sender: FDA-Public Use
  Company Number: JP-SA-2020SA266352

PATIENT
  Age: 67 Year
  Sex: Female
  Weight: 62.7 kg

DRUGS (19)
  1. DEXAMETHASONE. [Suspect]
     Active Substance: DEXAMETHASONE
     Indication: PLASMA CELL MYELOMA
     Dosage: 40 MG, 1X
     Route: 065
     Dates: start: 20200917, end: 20200917
  2. POLARAMINE [Concomitant]
     Active Substance: DEXCHLORPHENIRAMINE MALEATE
     Indication: CHEMOTHERAPY SIDE EFFECT PROPHYLAXIS
     Dosage: DAILY DOSE: 5 MG
     Route: 065
     Dates: start: 20200917, end: 20200917
  3. ALKERANA [Suspect]
     Active Substance: MELPHALAN
     Indication: PLASMA CELL MYELOMA
     Dosage: DAILY DOSE: 2 MG
     Route: 048
     Dates: start: 20201017, end: 20201021
  4. POLARAMINE [Concomitant]
     Active Substance: DEXCHLORPHENIRAMINE MALEATE
     Dosage: DAILY DOSE: 5 MG
     Route: 065
     Dates: start: 20201001, end: 20201001
  5. ACELIO [Concomitant]
     Active Substance: ACETAMINOPHEN
     Indication: CHILLS
     Dosage: UNK
     Route: 065
     Dates: start: 20201010
  6. VALIXA [Concomitant]
     Active Substance: VALGANCICLOVIR
     Indication: CYTOMEGALOVIRUS INFECTION REACTIVATION
     Dosage: UNK
     Route: 048
     Dates: start: 20200829, end: 20200917
  7. ISATUXIMAB [Suspect]
     Active Substance: ISATUXIMAB
     Dosage: 10 MG/KG, 1X
     Route: 041
     Dates: start: 20201001, end: 20201001
  8. ACELIO [Concomitant]
     Active Substance: ACETAMINOPHEN
     Indication: CHEMOTHERAPY SIDE EFFECT PROPHYLAXIS
     Dosage: DAILY DOSE: 1000 MG
     Route: 065
     Dates: start: 20201001, end: 20201001
  9. ATARAX?P [HYDROXYZINE EMBONATE] [Concomitant]
     Indication: CHEMOTHERAPY SIDE EFFECT PROPHYLAXIS
     Dosage: DAILY DOSE: 25 MG
     Route: 065
     Dates: start: 20200917, end: 20200917
  10. ATARAX?P [HYDROXYZINE EMBONATE] [Concomitant]
     Indication: FACE OEDEMA
  11. POMALIDOMIDE [Concomitant]
     Active Substance: POMALIDOMIDE
     Indication: PLASMA CELL MYELOMA
     Dosage: DAILY DOSE: 2 MG
     Route: 065
     Dates: start: 20200917, end: 20200923
  12. ACETAMINOPHEN. [Concomitant]
     Active Substance: ACETAMINOPHEN
     Indication: CHEMOTHERAPY SIDE EFFECT PROPHYLAXIS
     Dosage: DAILY DOSE: 500 MG
     Route: 048
     Dates: start: 20200917, end: 20200917
  13. DEXAMETHASONE. [Suspect]
     Active Substance: DEXAMETHASONE
     Dosage: 40 MG, 1X
     Route: 065
     Dates: start: 20201001, end: 20201001
  14. FAMOTIDINE. [Concomitant]
     Active Substance: FAMOTIDINE
     Indication: CHEMOTHERAPY SIDE EFFECT PROPHYLAXIS
     Dosage: DAILY DOSE: 20 MG
     Route: 048
     Dates: start: 20200909, end: 20200929
  15. ISATUXIMAB [Suspect]
     Active Substance: ISATUXIMAB
     Indication: PLASMA CELL MYELOMA
     Dosage: 10 MG/KG, 1X
     Route: 041
     Dates: start: 20200917, end: 20200917
  16. DAIPHEN [Concomitant]
     Active Substance: SULFAMETHOXAZOLE\TRIMETHOPRIM
     Indication: INFECTION PROPHYLAXIS
     Dosage: DAILY DOSE: 1 DF
     Route: 048
     Dates: start: 20200916, end: 20200929
  17. SOLU?CORTEF [Concomitant]
     Active Substance: HYDROCORTISONE SODIUM SUCCINATE
     Indication: CHEMOTHERAPY SIDE EFFECT PROPHYLAXIS
     Dosage: DAILY DOSE: 100 MG
     Route: 065
     Dates: start: 20200917, end: 20200917
  18. SOLU?CORTEF [Concomitant]
     Active Substance: HYDROCORTISONE SODIUM SUCCINATE
     Indication: FACE OEDEMA
  19. VALIXA [Concomitant]
     Active Substance: VALGANCICLOVIR
     Dosage: UNK
     Route: 048
     Dates: start: 20201005, end: 20201028

REACTIONS (7)
  - Platelet count decreased [Unknown]
  - Face oedema [Recovered/Resolved]
  - Chills [Recovered/Resolved]
  - Anaemia [Unknown]
  - Gastric haemorrhage [Recovering/Resolving]
  - Cytomegalovirus infection reactivation [Recovered/Resolved]
  - Infusion related reaction [Recovered/Resolved]

NARRATIVE: CASE EVENT DATE: 20200917
